FAERS Safety Report 5126421-X (Version None)
Quarter: 2006Q4

REPORT INFORMATION
  Report Type: 
  Country: None (occurrence: None)
  Receive Date: 20061010
  Receipt Date: 20060907
  Transmission Date: 20070319
  Serious: Yes (Death, Hospitalization, Other)
  Sender: FDA-Public Use
  Company Number: 2006-07-1138

PATIENT
  Age: 73 Year
  Sex: Male
  Weight: 81.6475 kg

DRUGS (7)
  1. TEMODAR [Suspect]
     Indication: GLIOBLASTOMA
     Dosage: 140 MG; QD; PO
     Route: 048
     Dates: start: 20060506, end: 20060601
  2. RADIATION THERAPY [Concomitant]
  3. DECADRON [Concomitant]
  4. FLOMAX [Concomitant]
  5. VALTREX [Concomitant]
  6. ALTACE [Concomitant]
  7. TOPROL-XL [Concomitant]

REACTIONS (2)
  - PLATELET COUNT DECREASED [None]
  - WHITE BLOOD CELL COUNT DECREASED [None]
